FAERS Safety Report 25090661 (Version 1)
Quarter: 2025Q1

REPORT INFORMATION
  Report Type: Spontaneous
  Country: US (occurrence: None)
  Receive Date: 20250318
  Receipt Date: 20250318
  Transmission Date: 20250409
  Serious: No
  Sender: FDA-CTU
  Company Number: None

PATIENT
  Age: 51 Year
  Sex: Female

DRUGS (2)
  1. NAPROXEN [Suspect]
     Active Substance: NAPROXEN
     Dosage: 500 MG TWICE A DAY ORAL
     Route: 048
     Dates: start: 20250226, end: 20250302
  2. Amox/Clav 875-125 mg tab [Concomitant]
     Dates: start: 20250226, end: 20250302

REACTIONS (3)
  - Diarrhoea [None]
  - Vomiting [None]
  - Nausea [None]

NARRATIVE: CASE EVENT DATE: 20250302
